FAERS Safety Report 19940958 (Version 1)
Quarter: 2021Q4

REPORT INFORMATION
  Report Type: Spontaneous
  Country: US (occurrence: US)
  Receive Date: 20211012
  Receipt Date: 20211012
  Transmission Date: 20220303
  Serious: No
  Sender: FDA-Public Use
  Company Number: 2021A763097

PATIENT
  Sex: Female

DRUGS (14)
  1. CRESTOR [Suspect]
     Active Substance: ROSUVASTATIN CALCIUM
     Indication: Blood cholesterol
     Route: 048
     Dates: start: 202101
  2. OMEPRAZOLE [Suspect]
     Active Substance: OMEPRAZOLE
     Route: 048
  3. MULTIVITAMIN WITH D3 [Concomitant]
  4. VITAMIN B6 [Concomitant]
     Active Substance: PYRIDOXINE HYDROCHLORIDE
  5. COENZYME Q10 [Concomitant]
     Active Substance: DIETARY SUPPLEMENT\UBIDECARENONE
  6. ZINC [Concomitant]
     Active Substance: ZINC
  7. ASPIRIN [Concomitant]
     Active Substance: ASPIRIN
  8. EYE GUARD PLUS [Concomitant]
  9. LUTEIN [Concomitant]
     Active Substance: LUTEIN
  10. VISICLEAR [Concomitant]
  11. FLONASE [Concomitant]
     Active Substance: FLUTICASONE PROPIONATE
  12. LEVOTHYROXINE [Concomitant]
     Active Substance: LEVOTHYROXINE
  13. HYDROCHLOROTHIAZIDE\LISINOPRIL [Concomitant]
     Active Substance: HYDROCHLOROTHIAZIDE\LISINOPRIL
  14. XANTHIUM [Concomitant]

REACTIONS (3)
  - Somnambulism [Recovered/Resolved]
  - Nightmare [Recovered/Resolved]
  - Amnesia [Recovered/Resolved]
